FAERS Safety Report 17534935 (Version 1)
Quarter: 2020Q1

REPORT INFORMATION
  Report Type: Spontaneous
  Country: FI (occurrence: FI)
  Receive Date: 20200313
  Receipt Date: 20200313
  Transmission Date: 20200409
  Serious: Yes (Disabling, Other)
  Sender: FDA-Public Use
  Company Number: FI-AMGEN-FINSP2020040083

PATIENT
  Age: 53 Year
  Sex: Female

DRUGS (1)
  1. AIMOVIG [Suspect]
     Active Substance: ERENUMAB-AOOE
     Indication: PRODUCT USED FOR UNKNOWN INDICATION
     Dosage: UNK
     Route: 065
     Dates: start: 20200114

REACTIONS (13)
  - Anxiety [Recovering/Resolving]
  - Dyspnoea [Recovered/Resolved]
  - Night sweats [Recovering/Resolving]
  - Visual impairment [Recovering/Resolving]
  - Hot flush [Recovering/Resolving]
  - Arrhythmia [Recovering/Resolving]
  - Obstruction [Recovered/Resolved]
  - Fatigue [Recovering/Resolving]
  - Depression [Recovering/Resolving]
  - Ileus paralytic [Recovering/Resolving]
  - Cough [Recovered/Resolved]
  - Feeling cold [Recovering/Resolving]
  - Insomnia [Recovering/Resolving]

NARRATIVE: CASE EVENT DATE: 202001
